FAERS Safety Report 10284069 (Version 1)
Quarter: 2014Q3

REPORT INFORMATION
  Report Type: Spontaneous
  Country: US (occurrence: None)
  Receive Date: 20140703
  Receipt Date: 20140703
  Transmission Date: 20150326
  Serious: Yes (Hospitalization)
  Sender: FDA-Public Use
  Company Number: None

PATIENT
  Age: 64 Year
  Sex: Male

DRUGS (2)
  1. TEMOZOLOMIDE 250MG SANDOZ [Suspect]
     Active Substance: TEMOZOLOMIDE
     Indication: IMMUNE ENHANCEMENT THERAPY
     Route: 048
     Dates: start: 20140307, end: 20140611
  2. TEMOZOLOMIDE 5MG SANDOZ [Suspect]
     Active Substance: TEMOZOLOMIDE
     Indication: IMMUNE ENHANCEMENT THERAPY
     Route: 048
     Dates: start: 20140307, end: 20140611

REACTIONS (4)
  - Malaise [None]
  - Pyrexia [None]
  - Pain [None]
  - Vomiting [None]

NARRATIVE: CASE EVENT DATE: 20140611
